FAERS Safety Report 7086876-0 (Version None)
Quarter: 2010Q4

REPORT INFORMATION
  Report Type: 
  Country: None (occurrence: None)
  Receive Date: 20101105
  Receipt Date: 20101028
  Transmission Date: 20110411
  Serious: Yes (Congenital Anomaly, Other)
  Sender: FDA-Public Use
  Company Number: FR-ABBOTT-10P-056-0683486-00

PATIENT
  Age: 1 Day
  Sex: Male

DRUGS (2)
  1. VALPROIC ACID [Suspect]
     Indication: DRUG EXPOSURE DURING PREGNANCY
     Route: 064
  2. VALPROATE SODIUM [Suspect]
     Indication: EPILEPSY

REACTIONS (12)
  - AGGRESSION [None]
  - ATRIAL SEPTAL DEFECT [None]
  - CONGENITAL NOSE MALFORMATION [None]
  - CONVULSION [None]
  - DRUG EXPOSURE DURING PREGNANCY [None]
  - DYSMORPHISM [None]
  - EPILEPSY [None]
  - LEARNING DISABILITY [None]
  - LIMB HYPOPLASIA CONGENITAL [None]
  - LIMB MALFORMATION [None]
  - MENTAL RETARDATION [None]
  - TALIPES [None]
